FAERS Safety Report 21303350 (Version 2)
Quarter: 2022Q3

REPORT INFORMATION
  Report Type: Spontaneous
  Country: GB (occurrence: GB)
  Receive Date: 20220907
  Receipt Date: 20220919
  Transmission Date: 20221027
  Serious: Yes (Hospitalization, Other)
  Sender: FDA-Public Use
  Company Number: None

PATIENT
  Age: 87 Year
  Sex: Male
  Weight: 79 kg

DRUGS (7)
  1. RITUXIMAB [Suspect]
     Active Substance: RITUXIMAB
     Dosage: 500MG/50 ML
     Dates: start: 20220825, end: 20220825
  2. BISOPROLOL [Concomitant]
     Active Substance: BISOPROLOL
     Dosage: 1 DF, 1X/DAY
     Dates: start: 20220215
  3. EDOXABAN [Concomitant]
     Active Substance: EDOXABAN
     Dosage: 1 DF, 1X/DAY
     Dates: start: 20220215
  4. FINASTERIDE [Concomitant]
     Active Substance: FINASTERIDE
     Dosage: 1 DF, 1X/DAY
     Dates: start: 20220413
  5. NITROGLYCERIN [Concomitant]
     Active Substance: NITROGLYCERIN
     Dosage: SPRAY ONE OR TWO DOSES UNDER TONGUE AND THEN CL
     Route: 060
     Dates: start: 20220215
  6. LACTULOSE [Concomitant]
     Active Substance: LACTULOSE
     Dosage: 15ML 2X/DAY
     Dates: start: 20220215
  7. SIMVASTATIN [Concomitant]
     Active Substance: SIMVASTATIN
     Dosage: 1 DF, 1X/DAY
     Dates: start: 20220215

REACTIONS (5)
  - Chest discomfort [Recovered/Resolved]
  - Cold sweat [Recovered/Resolved]
  - Chills [Recovered/Resolved]
  - Hypotension [Recovered/Resolved]
  - Pyrexia [Recovered/Resolved]

NARRATIVE: CASE EVENT DATE: 20220825
